FAERS Safety Report 8578760-8 (Version None)
Quarter: 2012Q3

REPORT INFORMATION
  Report Type: 
  Country: None (occurrence: None)
  Receive Date: 20120808
  Receipt Date: 20120327
  Transmission Date: 20120928
  Serious: Yes (Other)
  Sender: FDA-Public Use
  Company Number: US-NOVOPROD-333760

PATIENT
  Age: 51 Year
  Sex: Male
  Weight: 104 kg

DRUGS (4)
  1. VICTOZA [Suspect]
     Indication: OBESITY
     Dosage: 0.6 MG, QD
     Route: 058
     Dates: start: 20110722, end: 20110729
  2. VICTOZA [Suspect]
     Dosage: 1.2 MG, QD
     Route: 058
     Dates: start: 20110729
  3. VICTOZA [Suspect]
     Dosage: 1.8 MG, QD
     Route: 058
     Dates: start: 20110804, end: 20110805
  4. ZOCOR [Concomitant]

REACTIONS (1)
  - PANCREATITIS [None]
